FAERS Safety Report 4798411-8 (Version None)
Quarter: 2005Q4

REPORT INFORMATION
  Report Type: 
  Country: None (occurrence: None)
  Receive Date: 20051011
  Receipt Date: 20050930
  Transmission Date: 20060501
  Serious: Yes (Hospitalization, Other)
  Sender: FDA-Public Use
  Company Number: KII-2005-0018854

PATIENT
  Age: 35 Year
  Sex: Male

DRUGS (3)
  1. MORPHINE [Suspect]
     Dosage: ORAL
     Route: 048
  2. CLONIDINE [Suspect]
     Dosage: ORAL
     Route: 048
  3. TRAZODONE (TRAZODONE) [Suspect]
     Dosage: ORAL
     Route: 048

REACTIONS (16)
  - ACIDOSIS [None]
  - AGITATION [None]
  - ANION GAP INCREASED [None]
  - BLOOD PH DECREASED [None]
  - BLOOD POTASSIUM INCREASED [None]
  - COMA [None]
  - FALL [None]
  - HYPOKALAEMIA [None]
  - HYPOTENSION [None]
  - INTENTIONAL DRUG MISUSE [None]
  - LIVER FUNCTION TEST ABNORMAL [None]
  - MULTIPLE DRUG OVERDOSE [None]
  - MYOCARDIAL INFARCTION [None]
  - RENAL FAILURE [None]
  - SELF-INJURIOUS IDEATION [None]
  - SEPSIS [None]
